FAERS Safety Report 5520242-1 (Version None)
Quarter: 2007Q4

REPORT INFORMATION
  Report Type: 
  Country: None (occurrence: None)
  Receive Date: 20071116
  Receipt Date: 20071105
  Transmission Date: 20080405
  Serious: Yes (Other)
  Sender: FDA-Public Use
  Company Number: KR-GILEAD-2007-0014234

PATIENT
  Sex: Male

DRUGS (1)
  1. HEPSERA [Suspect]

REACTIONS (1)
  - DRUG INEFFECTIVE [None]
